FAERS Safety Report 15616157 (Version 3)
Quarter: 2019Q1

REPORT INFORMATION
  Report Type: Spontaneous
  Country: US (occurrence: US)
  Receive Date: 20181114
  Receipt Date: 20190122
  Transmission Date: 20190417
  Serious: No
  Sender: FDA-Public Use
  Company Number: US-PFIZER INC-2018230953

PATIENT
  Age: 49 Year
  Sex: Female

DRUGS (4)
  1. TAXOTERE [Suspect]
     Active Substance: DOCETAXEL
     Indication: BREAST CANCER
     Dosage: 125 MG, EVERY 3 WEEKS, 6 CYCLES
     Dates: start: 20110927, end: 20120124
  2. DOCETAXEL. [Suspect]
     Active Substance: DOCETAXEL
     Indication: BREAST CANCER FEMALE
     Dosage: 125 MG, EVERY 3 WEEKS, 6 CYCLES
     Dates: start: 20110927, end: 20120124
  3. PARAPLATIN [Concomitant]
     Active Substance: CARBOPLATIN
     Indication: BREAST CANCER
     Dosage: UNK
  4. CARBOPLATIN. [Concomitant]
     Active Substance: CARBOPLATIN

REACTIONS (1)
  - Alopecia [Not Recovered/Not Resolved]

NARRATIVE: CASE EVENT DATE: 20111018
